FAERS Safety Report 5591050-0 (Version None)
Quarter: 2008Q1

REPORT INFORMATION
  Report Type: 
  Country: None (occurrence: None)
  Receive Date: 20080115
  Receipt Date: 20080109
  Transmission Date: 20080703
  Serious: Yes (Other)
  Sender: FDA-Public Use
  Company Number: PHBS2008US00642

PATIENT
  Age: 30 Year
  Sex: Female

DRUGS (1)
  1. PIMECROLIMUS [Suspect]
     Indication: DERMATITIS
     Route: 061

REACTIONS (2)
  - DERMATITIS [None]
  - RASH PRURITIC [None]
